FAERS Safety Report 4610497-X (Version None)
Quarter: 2005Q2

REPORT INFORMATION
  Report Type: 
  Country: None (occurrence: None)
  Receive Date: 20050301
  Receipt Date: 20041208
  Transmission Date: 20051028
  Serious: No
  Sender: FDA-Public Use
  Company Number: WAES 0412USA01136

PATIENT
  Age: 66 Year
  Sex: Female
  Weight: 73.9363 kg

DRUGS (5)
  1. ZETIA [Suspect]
     Indication: HYPERLIPIDAEMIA
     Dosage: 10 MG/DAILY/PO
     Route: 048
  2. AZMACORT [Concomitant]
  3. PREVACID [Concomitant]
  4. ALBUTEROL [Concomitant]
  5. DIAZEPAM [Concomitant]

REACTIONS (2)
  - MUSCLE SPASMS [None]
  - MYALGIA [None]
